FAERS Safety Report 21628222 (Version 3)
Quarter: 2023Q1

REPORT INFORMATION
  Report Type: Spontaneous
  Country: PL (occurrence: PL)
  Receive Date: 20221122
  Receipt Date: 20230111
  Transmission Date: 20230417
  Serious: Yes (Other)
  Sender: FDA-Public Use
  Company Number: PL-SUN PHARMACEUTICAL INDUSTRIES LTD-2022RR-355503

PATIENT
  Age: 69 Year
  Sex: Male

DRUGS (13)
  1. ZOLEDRONIC ACID [Suspect]
     Active Substance: ZOLEDRONIC ACID
     Indication: Lung adenocarcinoma
     Dosage: 4 MILLIGRAM
     Route: 042
  2. ZOLEDRONIC ACID [Suspect]
     Active Substance: ZOLEDRONIC ACID
     Indication: Metastatic bone disease prophylaxis
  3. PEMETREXED [Suspect]
     Active Substance: PEMETREXED
     Indication: Lung adenocarcinoma
     Dosage: 500 MG/M2, 21-DAYS CYCLES
     Route: 042
     Dates: start: 20210325
  4. PEMETREXED [Suspect]
     Active Substance: PEMETREXED
     Indication: Immunochemotherapy
  5. PEMETREXED [Suspect]
     Active Substance: PEMETREXED
     Indication: Lung adenocarcinoma stage IV
  6. CISPLATIN [Suspect]
     Active Substance: CISPLATIN
     Indication: Lung adenocarcinoma
     Dosage: 75 MG/M2
     Route: 065
     Dates: start: 20220325
  7. PEMBROLIZUMAB [Suspect]
     Active Substance: PEMBROLIZUMAB
     Indication: Lung adenocarcinoma
     Dosage: FIXED DOSE 200 MG, CYCLIC
     Route: 065
     Dates: start: 20210325
  8. PEMBROLIZUMAB [Suspect]
     Active Substance: PEMBROLIZUMAB
     Indication: Lung adenocarcinoma stage IV
  9. PEMBROLIZUMAB [Suspect]
     Active Substance: PEMBROLIZUMAB
     Indication: Immunochemotherapy
  10. DARBEPOETIN ALFA [Concomitant]
     Active Substance: DARBEPOETIN ALFA
     Indication: Lung adenocarcinoma
     Dosage: UNK
     Route: 065
  11. FILGRASTIM [Concomitant]
     Active Substance: FILGRASTIM
     Indication: Lung adenocarcinoma
     Dosage: UNK
     Route: 065
  12. FOLIC ACID [Concomitant]
     Active Substance: FOLIC ACID
     Indication: Supplementation therapy
     Dosage: UNK
     Route: 065
     Dates: start: 202103
  13. VITAMIN B12 [Concomitant]
     Active Substance: CYANOCOBALAMIN
     Indication: Supplementation therapy
     Dosage: UNK
     Route: 065
     Dates: start: 202103

REACTIONS (9)
  - Lumbar vertebral fracture [Unknown]
  - Haematotoxicity [Unknown]
  - Fatigue [Unknown]
  - Decreased appetite [Unknown]
  - Nausea [Unknown]
  - Neutropenia [Unknown]
  - Anaemia [Unknown]
  - Atrial fibrillation [Unknown]
  - Therapeutic product effect incomplete [Unknown]
